FAERS Safety Report 5546065-5 (Version None)
Quarter: 2007Q4

REPORT INFORMATION
  Report Type: 
  Country: None (occurrence: None)
  Receive Date: 20071211
  Receipt Date: 20070917
  Transmission Date: 20080405
  Serious: No
  Sender: FDA-Public Use
  Company Number: US-BRISTOL-MYERS SQUIBB COMPANY-13910716

PATIENT
  Age: 56 Year
  Sex: Female
  Weight: 87 kg

DRUGS (7)
  1. EMSAM [Suspect]
     Route: 062
     Dates: start: 20070517
  2. HYDROCHLOROTHIAZIDE [Concomitant]
  3. DICYCLOMINE [Concomitant]
  4. TRAZODONE HCL [Concomitant]
  5. ALTACE [Concomitant]
  6. SYNTHROID [Concomitant]
  7. ATIVAN [Concomitant]

REACTIONS (1)
  - SKIN IRRITATION [None]
